FAERS Safety Report 18727034 (Version 2)
Quarter: 2021Q2

REPORT INFORMATION
  Report Type: Report from Study
  Country: US (occurrence: US)
  Receive Date: 20210111
  Receipt Date: 20210520
  Transmission Date: 20210717
  Serious: Yes (Hospitalization)
  Sender: FDA-Public Use
  Company Number: US-PFIZER INC-2021008532

PATIENT
  Age: 35 Year
  Sex: Male
  Weight: 81.9 kg

DRUGS (10)
  1. INCB018424 [Suspect]
     Active Substance: RUXOLITINIB
     Indication: GRAFT VERSUS HOST DISEASE
     Dosage: 10 MG, 2X/DAY
     Route: 048
     Dates: start: 20200707
  2. CYCLOSPORINE. [Concomitant]
     Active Substance: CYCLOSPORINE
  3. PREGABALIN. [Concomitant]
     Active Substance: PREGABALIN
  4. METOPROLOL TARTRATE. [Concomitant]
     Active Substance: METOPROLOL TARTRATE
  5. PROGRAF [Concomitant]
     Active Substance: TACROLIMUS
  6. OMEPRAZOLE. [Concomitant]
     Active Substance: OMEPRAZOLE
  7. PREDNISONE. [Concomitant]
     Active Substance: PREDNISONE
  8. PANTOPRAZOLE [Concomitant]
     Active Substance: PANTOPRAZOLE
  9. VIROPTIC [Suspect]
     Active Substance: TRIFLURIDINE
     Indication: OPHTHALMIC HERPES SIMPLEX
     Dosage: UNK
     Dates: start: 20201013
  10. ONDANSETRON [Concomitant]
     Active Substance: ONDANSETRON

REACTIONS (2)
  - Herpes ophthalmic [Recovering/Resolving]
  - Staphylococcal bacteraemia [Recovering/Resolving]

NARRATIVE: CASE EVENT DATE: 20201027
